FAERS Safety Report 19262670 (Version 1)
Quarter: 2021Q2

REPORT INFORMATION
  Report Type: Other
  Country: MX (occurrence: MX)
  Receive Date: 20210517
  Receipt Date: 20210517
  Transmission Date: 20210717
  Serious: Yes (Death, Hospitalization, Other)
  Sender: FDA-Public Use
  Company Number: MX-ROCHE-2825341

PATIENT
  Age: 23 Year
  Sex: Female

DRUGS (6)
  1. MYCOPHENOLIC ACID. [Suspect]
     Active Substance: MYCOPHENOLIC ACID
     Indication: APLASTIC ANAEMIA
     Route: 065
  2. PIPERACILLIN/TAZOBACTAM [Concomitant]
     Active Substance: PIPERACILLIN SODIUM\TAZOBACTAM SODIUM
  3. DEFERASIROX. [Concomitant]
     Active Substance: DEFERASIROX
  4. DICLOXACILLIN [Concomitant]
     Active Substance: DICLOXACILLIN
  5. MYCOPHENOLATE MOFETIL. [Suspect]
     Active Substance: MYCOPHENOLATE MOFETIL
     Indication: APLASTIC ANAEMIA
     Route: 065
  6. DANAZOL. [Concomitant]
     Active Substance: DANAZOL

REACTIONS (4)
  - Cellulitis [Recovered/Resolved]
  - Acute myeloid leukaemia [Fatal]
  - Acute febrile neutrophilic dermatosis [Recovered/Resolved]
  - Myelodysplastic syndrome [Not Recovered/Not Resolved]
